FAERS Safety Report 25829757 (Version 1)
Quarter: 2025Q3

REPORT INFORMATION
  Report Type: Spontaneous
  Country: US (occurrence: US)
  Receive Date: 20250922
  Receipt Date: 20250922
  Transmission Date: 20251021
  Serious: Yes (Other)
  Sender: RADIUS PHARM
  Company Number: US-RADIUS HEALTH, INC.-2023US006034

PATIENT
  Age: 61 Year
  Sex: Female

DRUGS (1)
  1. TYMLOS [Suspect]
     Active Substance: ABALOPARATIDE
     Indication: Senile osteoporosis
     Dosage: 80 MICROGRAM, QD
     Route: 058
     Dates: start: 202308

REACTIONS (8)
  - Lupus-like syndrome [Unknown]
  - Nausea [Unknown]
  - Injection site erythema [Unknown]
  - Pain [Unknown]
  - Dizziness [Unknown]
  - Arthralgia [Unknown]
  - Product administered at inappropriate site [Unknown]
  - Product use issue [Unknown]

NARRATIVE: CASE EVENT DATE: 20250901
